FAERS Safety Report 5752011-1 (Version None)
Quarter: 2008Q2

REPORT INFORMATION
  Report Type: 
  Country: None (occurrence: None)
  Receive Date: 20080527
  Receipt Date: 20080509
  Transmission Date: 20081010
  Serious: Yes (Other)
  Sender: FDA-Public Use
  Company Number: 2008SP009203

PATIENT
  Sex: Female

DRUGS (1)
  1. COPPERTONE SPORT DRY LOTION, SPF 30 OCTINOXATE/OCTYL SALICYLATE/OXYBEN [Suspect]
     Indication: DRUG USE FOR UNKNOWN INDICATION
     Dosage: ; QD; TOP
     Route: 061
     Dates: start: 20080503, end: 20080504

REACTIONS (7)
  - ANAPHYLACTIC SHOCK [None]
  - APPLICATION SITE REACTION [None]
  - BLISTER [None]
  - PAIN [None]
  - PHOTOSENSITIVITY REACTION [None]
  - RASH [None]
  - URTICARIA [None]
